FAERS Safety Report 6630221-9 (Version None)
Quarter: 2010Q1

REPORT INFORMATION
  Report Type: 
  Country: None (occurrence: None)
  Receive Date: 20100311
  Receipt Date: 20100304
  Transmission Date: 20100710
  Serious: Yes (Other)
  Sender: FDA-Public Use
  Company Number: A0848345A

PATIENT
  Age: 14 Year
  Sex: Female

DRUGS (2)
  1. LAMICTAL [Suspect]
     Indication: PARTIAL SEIZURES
     Dosage: 100MG PER DAY
     Route: 048
     Dates: start: 20100217
  2. KEPPRA [Concomitant]

REACTIONS (2)
  - CONVULSION [None]
  - FATIGUE [None]
